FAERS Safety Report 8602507-X (Version None)
Quarter: 2012Q3

REPORT INFORMATION
  Report Type: 
  Country: None (occurrence: None)
  Receive Date: 20120817
  Receipt Date: 20120810
  Transmission Date: 20120928
  Serious: Yes (Death, Hospitalization)
  Sender: FDA-Public Use
  Company Number: TW-PFIZER INC-2012177749

PATIENT
  Age: 60 Year
  Sex: Male
  Weight: 49.2 kg

DRUGS (9)
  1. REPAGLINIDE [Concomitant]
     Indication: PROPHYLAXIS
     Dosage: 1 MG, 3X/DAY
     Route: 048
     Dates: start: 20120626, end: 20120629
  2. SORAFENIB TOSILATE [Suspect]
     Indication: METASTATIC RENAL CELL CARCINOMA
     Dosage: 800 MG, 2X/DAY
     Dates: start: 20110302, end: 20120224
  3. NORVASC [Concomitant]
     Indication: HYPERTENSION
     Dosage: 5 MG, 1X/DAY
     Route: 048
     Dates: start: 20080815, end: 20120713
  4. ACETYLCYSTEINE [Concomitant]
     Indication: COUGH
     Dosage: 1 DF, TID
     Route: 048
     Dates: start: 20120710, end: 20120713
  5. ATORVASTATIN CALCIUM [Suspect]
     Indication: HYPERLIPIDAEMIA
     Dosage: 10 MG, 2X/DAY
     Route: 048
     Dates: start: 20120529, end: 20120712
  6. METFORMIN [Concomitant]
     Indication: PROPHYLAXIS
     Dosage: 500 MG, 1X/DAY
     Route: 048
     Dates: start: 20120710, end: 20120713
  7. EVEROLIMUS [Suspect]
     Indication: RENAL CANCER METASTATIC
     Dosage: 10 MG, 1X/DAY
     Route: 048
     Dates: start: 20120224, end: 20120712
  8. NYSTATIN [Concomitant]
     Indication: MUCOSAL INFLAMMATION
     Dosage: 500000 IU, 4X/DAY
     Route: 048
     Dates: start: 20120529, end: 20120712
  9. PREDNISOLONE [Concomitant]
     Indication: DECREASED APPETITE
     Dosage: 5 MG, 2X/DAY
     Route: 048
     Dates: start: 20120710, end: 20120712

REACTIONS (1)
  - HEPATITIS FULMINANT [None]
